FAERS Safety Report 5961924-7 (Version None)
Quarter: 2008Q4

REPORT INFORMATION
  Report Type: 
  Country: None (occurrence: None)
  Receive Date: 20081121
  Receipt Date: 20081110
  Transmission Date: 20090506
  Serious: Yes (Other)
  Sender: FDA-Public Use
  Company Number: US-NOVOPROD-281171

PATIENT
  Age: 67 Year
  Sex: Female

DRUGS (3)
  1. NOVOLIN R [Suspect]
     Indication: INSULIN-REQUIRING TYPE 2 DIABETES MELLITUS
     Dosage: 44 IU, QD
     Route: 058
     Dates: start: 20031001
  2. NOVOLIN N [Suspect]
     Indication: INSULIN-REQUIRING TYPE 2 DIABETES MELLITUS
     Dosage: 118 IU, QD
     Route: 058
     Dates: start: 20031001
  3. GLUCOPHAGE [Concomitant]
     Indication: INSULIN-REQUIRING TYPE 2 DIABETES MELLITUS
     Dosage: 4000 MG, QD
     Route: 048

REACTIONS (2)
  - CHEST DISCOMFORT [None]
  - DYSPNOEA [None]
